APPROVED DRUG PRODUCT: FLUTICASONE PROPIONATE
Active Ingredient: FLUTICASONE PROPIONATE
Strength: 0.005%
Dosage Form/Route: OINTMENT;TOPICAL
Application: A077168 | Product #001 | TE Code: AB
Applicant: COSETTE PHARMACEUTICALS INC
Approved: Mar 3, 2006 | RLD: No | RS: No | Type: RX